FAERS Safety Report 23818043 (Version 1)
Quarter: 2024Q2

REPORT INFORMATION
  Report Type: Spontaneous
  Country: PL (occurrence: None)
  Receive Date: 20240506
  Receipt Date: 20240506
  Transmission Date: 20240716
  Serious: Yes (Hospitalization)
  Sender: FDA-Public Use
  Company Number: PL-Orion Corporation ORION PHARMA-TREX2024-0096

PATIENT
  Age: 16 Year
  Sex: Male

DRUGS (7)
  1. METHOTREXATE [Suspect]
     Active Substance: METHOTREXATE
     Indication: Graft versus host disease
  2. ETOPOSIDE [Suspect]
     Active Substance: ETOPOSIDE
     Indication: Graft versus host disease
  3. THYMOGLOBULIN [Suspect]
     Active Substance: LAPINE T-LYMPHOCYTE IMMUNE GLOBULIN
     Indication: Graft versus host disease
  4. CYCLOSPORINE [Suspect]
     Active Substance: CYCLOSPORINE
     Indication: Graft versus host disease
  5. RITUXIMAB [Suspect]
     Active Substance: RITUXIMAB
     Indication: Graft versus host disease
     Dosage: ONE DOSE
  6. RITUXIMAB [Suspect]
     Active Substance: RITUXIMAB
     Indication: Epstein-Barr virus infection reactivation
  7. FLUOCINOLONE [Concomitant]
     Active Substance: FLUOCINOLONE

REACTIONS (8)
  - Staphylococcal bacteraemia [Recovering/Resolving]
  - Mucosal inflammation [Recovering/Resolving]
  - Staphylococcal sepsis [Recovering/Resolving]
  - Fungal sepsis [Recovering/Resolving]
  - Meningitis [Recovering/Resolving]
  - Intestinal perforation [Recovering/Resolving]
  - Peritoneal abscess [Recovering/Resolving]
  - Product use in unapproved indication [Unknown]
